FAERS Safety Report 4998741-0 (Version None)
Quarter: 2006Q2

REPORT INFORMATION
  Report Type: 
  Country: None (occurrence: None)
  Receive Date: 20060508
  Receipt Date: 20060505
  Transmission Date: 20061013
  Serious: Yes (Hospitalization)
  Sender: FDA-Public Use
  Company Number: RB-1106-2004

PATIENT
  Age: 28 Year
  Sex: Male

DRUGS (2)
  1. BUPRENORPHINE HCL [Suspect]
     Route: 042
     Dates: end: 19980915
  2. COCAINE [Suspect]

REACTIONS (6)
  - ENDOCARDITIS ENTEROCOCCAL [None]
  - ENDOCARDITIS STAPHYLOCOCCAL [None]
  - GENERAL PHYSICAL HEALTH DETERIORATION [None]
  - HEPATITIS C [None]
  - INTENTIONAL DRUG MISUSE [None]
  - MITRAL VALVE INCOMPETENCE [None]
